FAERS Safety Report 17427547 (Version 1)
Quarter: 2020Q1

REPORT INFORMATION
  Report Type: Spontaneous
  Country: DE (occurrence: DE)
  Receive Date: 20200217
  Receipt Date: 20200217
  Transmission Date: 20200409
  Serious: Yes (Other)
  Sender: FDA-Public Use
  Company Number: DE-PFIZER INC-2020064431

PATIENT
  Age: 1 Day
  Sex: Female
  Weight: 2.38 kg

DRUGS (3)
  1. VENLAFAXINE HCL [Suspect]
     Active Substance: VENLAFAXINE HYDROCHLORIDE
     Indication: ANXIETY DISORDER
     Dosage: 150 MG, 1X/DAY (0. - 39.6. GESTATIONAL WEEK)
     Route: 064
     Dates: start: 20181102, end: 20190808
  2. FEMIBION 2 [Concomitant]
     Indication: PROPHYLAXIS OF NEURAL TUBE DEFECT
     Dosage: 0.4 MG, 1X/DAY
     Route: 064
     Dates: start: 20181102, end: 20190808
  3. THYRONAJOD [Concomitant]
     Active Substance: LEVOTHYROXINE SODIUM\POTASSIUM IODIDE
     Indication: HYPOTHYROIDISM
     Dosage: 150 UG, 1X/DAY (100 [?G/D] / 150 [?G/D])
     Route: 064
     Dates: start: 20181102, end: 20190808

REACTIONS (2)
  - Small for dates baby [Recovered/Resolved]
  - Maternal exposure during pregnancy [Recovered/Resolved]

NARRATIVE: CASE EVENT DATE: 20190808
